FAERS Safety Report 16289452 (Version 1)
Quarter: 2019Q2

REPORT INFORMATION
  Report Type: Spontaneous
  Country: DE (occurrence: DE)
  Receive Date: 20190509
  Receipt Date: 20190509
  Transmission Date: 20190711
  Serious: Yes (Death)
  Sender: FDA-Public Use
  Company Number: DE-HORIZON-ACT-0131-2019

PATIENT
  Sex: Female

DRUGS (1)
  1. IMUKIN [Suspect]
     Active Substance: INTERFERON GAMMA
     Indication: PRODUCT USED FOR UNKNOWN INDICATION

REACTIONS (1)
  - Death [Fatal]
